FAERS Safety Report 21007555 (Version 1)
Quarter: 2022Q2

REPORT INFORMATION
  Report Type: Spontaneous
  Country: TR (occurrence: TR)
  Receive Date: 20220626
  Receipt Date: 20220626
  Transmission Date: 20220720
  Serious: Yes (Death)
  Sender: FDA-Public Use
  Company Number: TR-BEH-2022146750

PATIENT
  Age: 2 Year
  Sex: Female

DRUGS (1)
  1. HIZENTRA [Suspect]
     Active Substance: HUMAN IMMUNOGLOBULIN G
     Dosage: UNK
     Route: 058
     Dates: start: 20220504, end: 20220521

REACTIONS (2)
  - Cardiac failure [Fatal]
  - Respiratory failure [Fatal]
